FAERS Safety Report 5871282-4 (Version None)
Quarter: 2008Q3

REPORT INFORMATION
  Report Type: 
  Country: None (occurrence: None)
  Receive Date: 20080902
  Receipt Date: 20080818
  Transmission Date: 20090109
  Serious: Yes (Other)
  Sender: FDA-Public Use
  Company Number: MY-1167062

PATIENT
  Age: 2 Month
  Sex: Male

DRUGS (1)
  1. CYCLOMYDRIL [Suspect]
     Indication: MYDRIASIS
     Dosage: 2 GTTS 2 HRS APART; OPHTHALMIC
     Route: 047
     Dates: start: 20080622

REACTIONS (2)
  - CYANOSIS [None]
  - DYSPNOEA [None]
